FAERS Safety Report 4581507-3 (Version None)
Quarter: 2005Q1

REPORT INFORMATION
  Report Type: 
  Country: None (occurrence: None)
  Receive Date: 20050214
  Receipt Date: 20041104
  Transmission Date: 20050727
  Serious: No
  Sender: FDA-Public Use
  Company Number: US-GLAXOSMITHKLINE-A0532715A

PATIENT
  Sex: Female

DRUGS (4)
  1. LAMICTAL [Suspect]
     Indication: ILL-DEFINED DISORDER
     Dosage: 200MG PER DAY
     Route: 048
     Dates: start: 20040401
  2. PROZAC [Concomitant]
  3. TOPROL-XL [Concomitant]
  4. CLONIDINE [Concomitant]

REACTIONS (1)
  - HYPERTENSION [None]
